FAERS Safety Report 14822199 (Version 2)
Quarter: 2018Q2

REPORT INFORMATION
  Report Type: Report from Study
  Country: NL (occurrence: NL)
  Receive Date: 20180427
  Receipt Date: 20180622
  Transmission Date: 20180711
  Serious: Yes (Other)
  Sender: FDA-Public Use
  Company Number: NL-TEVA-2018-NL-887606

PATIENT
  Age: 60 Year
  Sex: Female

DRUGS (1)
  1. SULFASALAZINE TAB 500 MG [Suspect]
     Active Substance: SULFASALAZINE
     Indication: RHEUMATOID ARTHRITIS
     Dosage: 1000 MILLIGRAM DAILY;
     Route: 065
     Dates: start: 20080103, end: 20080207

REACTIONS (4)
  - Abdominal discomfort [Unknown]
  - Dermatitis allergic [Unknown]
  - Blood disorder [Unknown]
  - Leukopenia [Unknown]

NARRATIVE: CASE EVENT DATE: 20080207
